FAERS Safety Report 6419681-6 (Version None)
Quarter: 2009Q4

REPORT INFORMATION
  Report Type: 
  Country: None (occurrence: None)
  Receive Date: 20091029
  Receipt Date: 20091023
  Transmission Date: 20100525
  Serious: Yes (Other)
  Sender: FDA-Public Use
  Company Number: B0528046A

PATIENT
  Sex: Female

DRUGS (8)
  1. AVANDIA [Suspect]
     Dosage: 4MG PER DAY
     Route: 048
     Dates: start: 20070828, end: 20080428
  2. AVANDAMET [Suspect]
     Dosage: 4MG PER DAY
     Route: 048
     Dates: start: 20070518, end: 20070828
  3. AVANDIA [Suspect]
     Dosage: 4MG PER DAY
     Route: 048
     Dates: start: 20061227, end: 20070518
  4. CRESTOR [Concomitant]
     Dosage: 1TAB PER DAY
     Route: 048
  5. COAPROVEL [Concomitant]
     Dosage: 1TAB PER DAY
     Route: 048
  6. OMEPRAZOLE [Concomitant]
     Indication: DRUG USE FOR UNKNOWN INDICATION
     Dosage: 20MG PER DAY
     Route: 048
  7. DIAMICRON [Concomitant]
     Route: 048
  8. CRESTOR [Concomitant]
     Indication: DRUG USE FOR UNKNOWN INDICATION
     Dosage: 5MG PER DAY

REACTIONS (4)
  - FATIGUE [None]
  - MALAISE [None]
  - OEDEMA [None]
  - SILENT MYOCARDIAL INFARCTION [None]
